FAERS Safety Report 19888123 (Version 1)
Quarter: 2021Q3

REPORT INFORMATION
  Report Type: Spontaneous
  Country: NL (occurrence: NL)
  Receive Date: 20210927
  Receipt Date: 20210927
  Transmission Date: 20211014
  Serious: Yes (Other)
  Sender: FDA-Public Use
  Company Number: NL-TEVA-2021-NL-1957891

PATIENT
  Age: 32 Year
  Sex: Female
  Weight: 60 kg

DRUGS (1)
  1. METRONIDAZOL TABLET 500MG / BRAND NAME NOT SPECIFIED [Suspect]
     Active Substance: METRONIDAZOLE
     Indication: BLASTOCYSTIS INFECTION
     Dosage: 1500 MILLIGRAM DAILY; THERAPY END DATE: ASKU
     Route: 065
     Dates: start: 20210830

REACTIONS (9)
  - Tinnitus [Not Recovered/Not Resolved]
  - Headache [Not Recovered/Not Resolved]
  - Confusional state [Not Recovered/Not Resolved]
  - Depressed level of consciousness [Not Recovered/Not Resolved]
  - Nausea [Not Recovered/Not Resolved]
  - Panic attack [Not Recovered/Not Resolved]
  - Abnormal dreams [Unknown]
  - Hyperacusis [Not Recovered/Not Resolved]
  - Dizziness [Not Recovered/Not Resolved]

NARRATIVE: CASE EVENT DATE: 20210830
